FAERS Safety Report 15842652 (Version 3)
Quarter: 2019Q1

REPORT INFORMATION
  Report Type: Spontaneous
  Country: IN (occurrence: IN)
  Receive Date: 20190118
  Receipt Date: 20190118
  Transmission Date: 20190417
  Serious: Yes (Other)
  Sender: FDA-Public Use
  Company Number: PHHY2019IN005505

PATIENT
  Age: 36 Year
  Sex: Female

DRUGS (5)
  1. METHYLPREDNISOLONE. [Suspect]
     Active Substance: METHYLPREDNISOLONE
     Indication: VOGT-KOYANAGI-HARADA SYNDROME
     Dosage: 3 DF, UNK (1G)
     Route: 042
  2. PREDNISOLONE. [Suspect]
     Active Substance: PREDNISOLONE
     Indication: VOGT-KOYANAGI-HARADA SYNDROME
     Dosage: 1 MG/KG, (BODY WEIGHT) UNK
     Route: 065
  3. PREDNISOLONE. [Suspect]
     Active Substance: PREDNISOLONE
     Dosage: 60 MG, UNK
     Route: 048
  4. AZATHIOPRINE. [Suspect]
     Active Substance: AZATHIOPRINE
     Indication: VOGT-KOYANAGI-HARADA SYNDROME
     Dosage: 50 MG, BID
     Route: 065
  5. AZATHIOPRINE. [Suspect]
     Active Substance: AZATHIOPRINE
     Dosage: 50 MG, UNK
     Route: 048

REACTIONS (8)
  - Necrotising retinitis [Recovering/Resolving]
  - Cytomegalovirus chorioretinitis [Recovering/Resolving]
  - Vitritis [Unknown]
  - Vogt-Koyanagi-Harada syndrome [Unknown]
  - Necrotising herpetic retinopathy [Recovering/Resolving]
  - Product use in unapproved indication [Unknown]
  - Rhegmatogenous retinal detachment [Unknown]
  - Disease recurrence [Unknown]
